FAERS Safety Report 10488849 (Version 2)
Quarter: 2014Q4

REPORT INFORMATION
  Report Type: Spontaneous
  Country: SE (occurrence: SE)
  Receive Date: 20141002
  Receipt Date: 20141006
  Transmission Date: 20150528
  Serious: Yes (Other)
  Sender: FDA-Public Use
  Company Number: SE-JNJFOC-20140916398

PATIENT
  Age: 61 Year
  Sex: Female

DRUGS (5)
  1. XARELTO [Suspect]
     Active Substance: RIVAROXABAN
     Indication: EMBOLISM VENOUS
     Dosage: CUMULATIVE DOSE OF 180 MG
     Route: 048
     Dates: start: 20140601, end: 20140621
  2. XARELTO [Suspect]
     Active Substance: RIVAROXABAN
     Indication: THROMBOSIS
     Route: 048
     Dates: start: 20140622
  3. KAVEPENIN [Concomitant]
     Active Substance: PHENOXYMETHYLPENICILLIN CALCIUM
     Indication: ERYSIPELAS
     Route: 065
  4. XARELTO [Suspect]
     Active Substance: RIVAROXABAN
     Indication: EMBOLISM VENOUS
     Route: 048
     Dates: start: 20140622
  5. XARELTO [Suspect]
     Active Substance: RIVAROXABAN
     Indication: THROMBOSIS
     Dosage: CUMULATIVE DOSE OF 180 MG
     Route: 048
     Dates: start: 20140601, end: 20140621

REACTIONS (2)
  - Parenteral nutrition [Unknown]
  - Cerebral infarction [Unknown]

NARRATIVE: CASE EVENT DATE: 20140606
